FAERS Safety Report 6802094-2 (Version None)
Quarter: 2010Q2

REPORT INFORMATION
  Report Type: 
  Country: None (occurrence: None)
  Receive Date: 20100629
  Receipt Date: 20071123
  Transmission Date: 20101027
  Serious: No
  Sender: FDA-Public Use
  Company Number: US-PFIZER INC-2007066573

PATIENT
  Sex: Female

DRUGS (8)
  1. TIKOSYN [Suspect]
     Indication: ATRIAL FIBRILLATION
     Route: 048
     Dates: start: 20070807
  2. BETAPACE [Concomitant]
     Dates: end: 20070801
  3. NORVASC [Concomitant]
  4. WARFARIN [Concomitant]
  5. LIPITOR [Concomitant]
  6. AMARYL [Concomitant]
  7. HYDROCHLOROTHIAZIDE [Concomitant]
  8. AVAPRO [Concomitant]

REACTIONS (2)
  - DRUG INEFFECTIVE [None]
  - ELECTROCARDIOGRAM QT PROLONGED [None]
